FAERS Safety Report 13195856 (Version 2)
Quarter: 2017Q1

REPORT INFORMATION
  Report Type: Spontaneous
  Country: JP (occurrence: JP)
  Receive Date: 20170208
  Receipt Date: 20170301
  Transmission Date: 20170428
  Serious: Yes (Hospitalization)
  Sender: FDA-Public Use
  Company Number: PHJP2017JP004259

PATIENT
  Age: 95 Year
  Sex: Female

DRUGS (1)
  1. EXELON PATCH [Suspect]
     Active Substance: RIVASTIGMINE
     Indication: PRODUCT USED FOR UNKNOWN INDICATION
     Dosage: HALF PATCH 2.5 (HALF OF 4.5 MG RIVASTIGMINE BASE DOSE; 1.9 MG/24HR)
     Route: 062

REACTIONS (5)
  - Cardiac disorder [Unknown]
  - Marasmus [Unknown]
  - Pyrexia [Unknown]
  - Wrong technique in product usage process [Unknown]
  - Feeding disorder [Unknown]
